FAERS Safety Report 5268982-6 (Version None)
Quarter: 2007Q1

REPORT INFORMATION
  Report Type: 
  Country: None (occurrence: None)
  Receive Date: 20061212
  Receipt Date: 20040604
  Transmission Date: 20070707
  Serious: No
  Sender: FDA-Public Use
  Company Number: 2004UW09281

PATIENT
  Age: 38 Year
  Sex: Female
  Weight: 49.8957 kg

DRUGS (4)
  1. ZOLADEX [Suspect]
     Indication: BREAST CANCER
     Dosage: 3.6 MG SQ
     Route: 058
     Dates: start: 20040504
  2. EFFEXOR [Concomitant]
  3. FEMARA [Concomitant]
  4. CLARITIN [Concomitant]

REACTIONS (1)
  - ANAPHYLACTIC REACTION [None]
